FAERS Safety Report 7509588-5 (Version None)
Quarter: 2011Q2

REPORT INFORMATION
  Report Type: 
  Country: None (occurrence: None)
  Receive Date: 20110519
  Receipt Date: 20110510
  Transmission Date: 20111010
  Serious: Yes (Hospitalization)
  Sender: FDA-Public Use
  Company Number: DSJ-2011-08357

PATIENT
  Age: 65 Year
  Sex: Male

DRUGS (5)
  1. ZOLPIDEM TARTRATE [Suspect]
     Indication: PRODUCT USED FOR UNKNOWN INDICATION
  2. ASPIRIN [Concomitant]
  3. WARFARIN SODIUM [Concomitant]
  4. OLMESARTAN MEDOXOMIL [Suspect]
     Indication: HYPERTENSION
     Dosage: 20 MG, PER ORAL
     Route: 048
  5. CARVEDILOL [Suspect]
     Indication: CARDIAC FAILURE
     Dosage: 10 MG, PER ORAL
     Route: 048

REACTIONS (6)
  - BRADYCARDIA [None]
  - RESPIRATORY DEPRESSION [None]
  - BLOOD PRESSURE DECREASED [None]
  - SUICIDE ATTEMPT [None]
  - OVERDOSE [None]
  - ALTERED STATE OF CONSCIOUSNESS [None]
